FAERS Safety Report 8541071-0 (Version None)
Quarter: 2012Q3

REPORT INFORMATION
  Report Type: 
  Country: None (occurrence: None)
  Receive Date: 20120726
  Receipt Date: 20110822
  Transmission Date: 20120928
  Serious: No
  Sender: FDA-Public Use
  Company Number: US-ASTRAZENECA-2011SE50137

PATIENT
  Age: 21193 Day
  Sex: Female
  Weight: 145 kg

DRUGS (8)
  1. SINGULAIR [Concomitant]
  2. CELEBREX [Concomitant]
  3. BENZONARATE [Concomitant]
  4. SEROQUEL XR [Suspect]
     Indication: BORDERLINE PERSONALITY DISORDER
     Route: 048
     Dates: start: 20110601, end: 20110812
  5. LORAZEPAM [Concomitant]
  6. TRIAMPTERINE HCTZ [Concomitant]
  7. AZOR [Concomitant]
  8. AMITRIPTYLINE HYDROCHLORIDE [Concomitant]

REACTIONS (7)
  - INSOMNIA [None]
  - HOT FLUSH [None]
  - DRUG DOSE OMISSION [None]
  - DIARRHOEA [None]
  - CRYING [None]
  - DEPRESSION [None]
  - NAUSEA [None]
